FAERS Safety Report 8665245 (Version 2)
Quarter: 2012Q4

REPORT INFORMATION
  Report Type: 
  Country: US (occurrence: US)
  Receive Date: 20120716
  Receipt Date: 20121019
  Transmission Date: 20130627
  Serious: Yes (Hospitalization, Other)
  Sender: FDA-Public Use
  Company Number: US-ELI_LILLY_AND_COMPANY-US201207001420

PATIENT
  Age: 56 None
  Sex: Male
  Weight: 151.93 kg

DRUGS (2)
  1. HUMALOG LISPRO [Suspect]
     Indication: DIABETES MELLITUS
     Dosage: 2 u, prn
     Dates: start: 201201
  2. LANTUS [Concomitant]
     Dosage: UNK

REACTIONS (3)
  - Gliosarcoma [Not Recovered/Not Resolved]
  - Monoparesis [Recovering/Resolving]
  - Medication error [Unknown]
